FAERS Safety Report 8233300-8 (Version None)
Quarter: 2012Q1

REPORT INFORMATION
  Report Type: 
  Country: None (occurrence: None)
  Receive Date: 20120323
  Receipt Date: 20120323
  Transmission Date: 20120608
  Serious: Yes (Other)
  Sender: FDA-Public Use
  Company Number: None

PATIENT
  Age: 50 Year
  Sex: Female
  Weight: 68.0396 kg

DRUGS (1)
  1. TEMAZEPAM [Suspect]
     Dosage: 30 1 DAY

REACTIONS (2)
  - PRODUCT TASTE ABNORMAL [None]
  - MALAISE [None]
